FAERS Safety Report 12991245 (Version 1)
Quarter: 2016Q4

REPORT INFORMATION
  Report Type: Report from Study
  Country: HU (occurrence: HU)
  Receive Date: 20161201
  Receipt Date: 20161201
  Transmission Date: 20170207
  Serious: Yes (Hospitalization)
  Sender: FDA-Public Use
  Company Number: HU-KADMON PHARMACEUTICALS, LLC-KAD201612-004389

PATIENT
  Age: 70 Year
  Sex: Male

DRUGS (7)
  1. KERBERAN 75 MG, FILM-COATED TABLET [Concomitant]
     Indication: ANTIPLATELET THERAPY
     Route: 048
     Dates: start: 2012
  2. PROPRANOLOL [Concomitant]
     Active Substance: PROPRANOLOL\PROPRANOLOL HYDROCHLORIDE
     Indication: HYPERTENSION
     Route: 048
     Dates: start: 2012
  3. SPIRON 50 MG, FILM-COATED TABLET [Concomitant]
     Indication: DIURETIC THERAPY
     Route: 048
     Dates: start: 2012
  4. EXVIERA 250 MG, FILM-COATED TABLET [Suspect]
     Active Substance: DASABUVIR SODIUM MONOHYDRATE
     Indication: HEPATITIS C
     Route: 048
     Dates: start: 20150623, end: 20151010
  5. RIBAVIRIN 200 MG [Suspect]
     Active Substance: RIBAVIRIN
     Indication: HEPATITIS C
     Dosage: FILM-COATED TABLET
     Route: 048
     Dates: start: 20150623
  6. VIEKIRAX FILM-COATED TABLET [Suspect]
     Active Substance: OMBITASVIR\PARITAPREVIR\RITONAVIR
     Indication: HEPATITIS C
     Dosage: 12.5/75/50 MG; TWO TABLETS AT A TIME
     Route: 048
     Dates: start: 20150623, end: 20151010
  7. CAVINTON FORTE [Concomitant]
     Indication: CEREBRAL INFARCTION
     Dosage: TABLET
     Dates: start: 2005

REACTIONS (2)
  - Renal failure [Recovering/Resolving]
  - Asphyxia [Recovered/Resolved]

NARRATIVE: CASE EVENT DATE: 201506
